FAERS Safety Report 5614202-X (Version None)
Quarter: 2008Q1

REPORT INFORMATION
  Report Type: 
  Country: None (occurrence: None)
  Receive Date: 20080205
  Receipt Date: 20080129
  Transmission Date: 20080703
  Serious: Yes (Hospitalization)
  Sender: FDA-Public Use
  Company Number: BE-PFIZER INC-2006154705

PATIENT
  Sex: Female

DRUGS (9)
  1. SU-011,248 [Suspect]
     Indication: RENAL CELL CARCINOMA
     Route: 048
  2. ADALAT [Concomitant]
     Route: 048
  3. ASAFLOW [Concomitant]
     Route: 048
  4. TRAMADOL HCL [Concomitant]
     Route: 048
     Dates: start: 20040712
  5. DAFALGAN [Concomitant]
     Route: 048
     Dates: start: 20060510
  6. D-VITAL CALCIUM [Concomitant]
     Route: 048
     Dates: start: 20060215
  7. ELTHYRONE [Concomitant]
     Route: 048
     Dates: start: 20030513
  8. MEDROL [Concomitant]
     Route: 048
     Dates: start: 20030805
  9. SIMVASTATIN [Concomitant]
     Route: 048
     Dates: start: 20060510

REACTIONS (1)
  - PULMONARY HAEMORRHAGE [None]
